FAERS Safety Report 8046550-0 (Version None)
Quarter: 2012Q1

REPORT INFORMATION
  Report Type: 
  Country: None (occurrence: None)
  Receive Date: 20120113
  Receipt Date: 20120111
  Transmission Date: 20120608
  Serious: Yes (Hospitalization)
  Sender: FDA-Public Use
  Company Number: US-MERCK-1104USA02219

PATIENT
  Age: 53 Year
  Sex: Female

DRUGS (2)
  1. FOSAMAX [Suspect]
     Indication: OSTEOPENIA
     Route: 048
     Dates: start: 20010401, end: 20060301
  2. FOSAMAX [Suspect]
     Route: 048
     Dates: start: 20071101, end: 20100801

REACTIONS (20)
  - ASTHMA [None]
  - ARTHROPATHY [None]
  - FALL [None]
  - GINGIVAL DISORDER [None]
  - OSTEOPOROSIS [None]
  - BLISTER [None]
  - SCAR [None]
  - MIGRAINE [None]
  - FEMUR FRACTURE [None]
  - DENTAL CARIES [None]
  - NERVE COMPRESSION [None]
  - ANKLE FRACTURE [None]
  - ANXIETY [None]
  - URTICARIA [None]
  - TONSILLAR DISORDER [None]
  - TOOTH LOSS [None]
  - JAW DISORDER [None]
  - HYPERTENSION [None]
  - GALLBLADDER DISORDER [None]
  - DEVICE FAILURE [None]
